FAERS Safety Report 7463000-3 (Version None)
Quarter: 2011Q1

REPORT INFORMATION
  Report Type: 
  Country: None (occurrence: None)
  Receive Date: 20110302
  Receipt Date: 20101214
  Transmission Date: 20110831
  Serious: Yes (Other)
  Sender: FDA-Public Use
  Company Number: 163-21880-10111385

PATIENT
  Age: 81 Year
  Sex: Male
  Weight: 69.355 kg

DRUGS (18)
  1. ZOFRAN [Concomitant]
  2. SODIUM CHLORIDE [Concomitant]
  3. COUMADIN [Concomitant]
  4. FERROUS SULFATE TAB [Concomitant]
  5. VELCADE [Concomitant]
  6. METOPROLOL TARTRATE [Concomitant]
  7. VITAMIN B6 [Concomitant]
  8. CALTRATE (CALCIUM CARBONATE) [Concomitant]
  9. VITAMIN D [Concomitant]
  10. DECADRON [Concomitant]
  11. ACYCLOVIR [Concomitant]
  12. REVLIMID [Suspect]
     Indication: MULTIPLE MYELOMA
     Dosage: 10 MG,1 IN 1 D, PO, 10 MG, X21 DAYS, PO
     Route: 046
     Dates: start: 20101115
  13. REVLIMID [Suspect]
     Indication: MULTIPLE MYELOMA
     Dosage: 10 MG,1 IN 1 D, PO, 10 MG, X21 DAYS, PO
     Route: 046
     Dates: start: 20101018, end: 20101101
  14. ASPIRIN [Concomitant]
  15. AREDIA [Concomitant]
  16. LIPITOR [Concomitant]
  17. STOOL SOFTENER (DOCUSATE SODIUM) [Concomitant]
  18. FOLIC ACID [Concomitant]

REACTIONS (11)
  - THROMBOCYTOPENIA [None]
  - HEADACHE [None]
  - FATIGUE [None]
  - NEUTROPENIA [None]
  - BRONCHITIS [None]
  - INSOMNIA [None]
  - HYPOAESTHESIA [None]
  - CHEST PAIN [None]
  - FULL BLOOD COUNT INCREASED [None]
  - NAUSEA [None]
  - DYSPNOEA EXERTIONAL [None]
